FAERS Safety Report 17508223 (Version 1)
Quarter: 2020Q1

REPORT INFORMATION
  Report Type: Spontaneous
  Country: JP (occurrence: JP)
  Receive Date: 20200306
  Receipt Date: 20200306
  Transmission Date: 20200409
  Serious: Yes (Death, Other)
  Sender: FDA-Public Use
  Company Number: JP-SGP-000004

PATIENT
  Age: 83 Year

DRUGS (2)
  1. METHYLPREDNISOLONE. [Suspect]
     Active Substance: METHYLPREDNISOLONE
     Indication: INTERSTITIAL LUNG DISEASE
     Route: 065
  2. SIVELESTAT SODIUM [Suspect]
     Active Substance: SIVELESTAT SODIUM
     Indication: INTERSTITIAL LUNG DISEASE
     Route: 065

REACTIONS (6)
  - Pulmonary thrombosis [Unknown]
  - Renal vascular thrombosis [Unknown]
  - Disease progression [Fatal]
  - Disseminated intravascular coagulation [Unknown]
  - Product use in unapproved indication [Unknown]
  - Interstitial lung disease [Fatal]
